FAERS Safety Report 7024507-6 (Version None)
Quarter: 2010Q4

REPORT INFORMATION
  Report Type: 
  Country: None (occurrence: None)
  Receive Date: 20101001
  Receipt Date: 20100927
  Transmission Date: 20110411
  Serious: Yes (Death, Hospitalization)
  Sender: FDA-Public Use
  Company Number: A0884104A

PATIENT
  Sex: Male
  Weight: 90 kg

DRUGS (2)
  1. SERETIDE [Suspect]
     Dosage: 1PUFF TWICE PER DAY
     Route: 055
     Dates: start: 20100420, end: 20100620
  2. SPIRIVA [Concomitant]
     Route: 065
     Dates: start: 20070101, end: 20100620

REACTIONS (1)
  - MULTI-ORGAN FAILURE [None]
